FAERS Safety Report 8791580 (Version 1)
Quarter: 2012Q4

REPORT INFORMATION
  Report Type: Spontaneous
  Country: US (occurrence: None)
  Receive Date: 20120913
  Receipt Date: 20120913
  Transmission Date: 20130627
  Serious: Yes (Hospitalization)
  Sender: FDA-Public Use
  Company Number: DKLU1084377

PATIENT
  Age: 34 Year
  Sex: Female

DRUGS (8)
  1. ONFI [Suspect]
     Indication: EPILEPSY
     Dosage: 5 mg milligram(s), 2 in 1 D
     Dates: start: 201207
  2. ONFI [Suspect]
     Indication: LENNOX-GASTAUT SYNDROME
     Dosage: 5 mg milligram(s), 2 in 1 D
     Dates: start: 201207
  3. ONFI [Suspect]
     Indication: EPILEPSY
     Dosage: 10 mg milligram(s), 2 IN 1 D
  4. ONFI [Suspect]
     Indication: LENNOX-GASTAUT SYNDROME
     Dosage: 10 mg milligram(s), 2 IN 1 D
  5. ONFI [Suspect]
     Indication: EPILEPSY
     Dosage: 20 mg milligram(s), 2 in  1 D
  6. ONFI [Suspect]
     Indication: LENNOX-GASTAUT SYNDROME
     Dosage: 20 mg milligram(s), 2 in  1 D
  7. ONFI [Suspect]
     Indication: EPILEPSY
  8. ONFI [Suspect]
     Indication: LENNOX-GASTAUT SYNDROME

REACTIONS (1)
  - Malaise [None]
